FAERS Safety Report 21521789 (Version 1)
Quarter: 2022Q4

REPORT INFORMATION
  Report Type: Spontaneous
  Country: CA (occurrence: None)
  Receive Date: 20221028
  Receipt Date: 20221028
  Transmission Date: 20230113
  Serious: Yes (Hospitalization, Other)
  Sender: FDA-Public Use
  Company Number: 2022A354801

PATIENT
  Age: 62 Year
  Sex: Female
  Weight: 88 kg

DRUGS (53)
  1. ESOMEPRAZOLE [Suspect]
     Active Substance: ESOMEPRAZOLE
     Indication: Product used for unknown indication
     Route: 065
  2. ACTEMRA [Suspect]
     Active Substance: TOCILIZUMAB
     Indication: Rheumatoid arthritis
     Route: 042
  3. ACTEMRA [Suspect]
     Active Substance: TOCILIZUMAB
     Indication: Rheumatoid arthritis
     Route: 042
  4. ACTEMRA [Suspect]
     Active Substance: TOCILIZUMAB
     Indication: Rheumatoid arthritis
     Route: 042
  5. ACTEMRA [Suspect]
     Active Substance: TOCILIZUMAB
     Indication: Rheumatoid arthritis
     Route: 042
  6. ACTEMRA [Suspect]
     Active Substance: TOCILIZUMAB
     Indication: Rheumatoid arthritis
     Route: 042
  7. ACTEMRA [Suspect]
     Active Substance: TOCILIZUMAB
     Indication: Rheumatoid arthritis
     Route: 042
  8. ACTEMRA [Suspect]
     Active Substance: TOCILIZUMAB
     Indication: Rheumatoid arthritis
     Route: 042
  9. ACTEMRA [Suspect]
     Active Substance: TOCILIZUMAB
     Indication: Rheumatoid arthritis
     Route: 042
  10. ACTEMRA [Suspect]
     Active Substance: TOCILIZUMAB
     Indication: Rheumatoid arthritis
     Route: 042
  11. ACTEMRA [Suspect]
     Active Substance: TOCILIZUMAB
     Indication: Rheumatoid arthritis
     Route: 042
  12. ACTEMRA [Suspect]
     Active Substance: TOCILIZUMAB
     Indication: Rheumatoid arthritis
     Route: 042
  13. ACTEMRA [Suspect]
     Active Substance: TOCILIZUMAB
     Indication: Rheumatoid arthritis
     Route: 042
  14. ACTEMRA [Suspect]
     Active Substance: TOCILIZUMAB
     Indication: Rheumatoid arthritis
     Route: 042
  15. ACTEMRA [Suspect]
     Active Substance: TOCILIZUMAB
     Indication: Rheumatoid arthritis
     Route: 042
  16. ACTEMRA [Suspect]
     Active Substance: TOCILIZUMAB
     Indication: Rheumatoid arthritis
     Route: 042
  17. ACTEMRA [Suspect]
     Active Substance: TOCILIZUMAB
     Indication: Rheumatoid arthritis
     Route: 042
  18. ACTEMRA [Suspect]
     Active Substance: TOCILIZUMAB
     Indication: Rheumatoid arthritis
     Route: 042
  19. AMLODIPINE BESYLATE [Suspect]
     Active Substance: AMLODIPINE BESYLATE
     Indication: Product used for unknown indication
     Route: 065
  20. AZITHROMYCIN [Suspect]
     Active Substance: AZITHROMYCIN
     Indication: Sinusitis
     Route: 065
  21. AZITHROMYCIN [Suspect]
     Active Substance: AZITHROMYCIN
     Indication: Lower respiratory tract infection
     Route: 065
  22. AZITHROMYCIN [Suspect]
     Active Substance: AZITHROMYCIN
     Indication: Sinusitis
     Route: 065
  23. AZITHROMYCIN [Suspect]
     Active Substance: AZITHROMYCIN
     Indication: Lower respiratory tract infection
     Route: 065
  24. CIPROFLOXACIN [Suspect]
     Active Substance: CIPROFLOXACIN
     Indication: Sinusitis
     Route: 065
  25. CIPROFLOXACIN [Suspect]
     Active Substance: CIPROFLOXACIN
     Indication: Lower respiratory tract infection
     Route: 065
  26. CIPROFLOXACIN [Suspect]
     Active Substance: CIPROFLOXACIN
     Indication: Sinusitis
     Route: 065
  27. CIPROFLOXACIN [Suspect]
     Active Substance: CIPROFLOXACIN
     Indication: Lower respiratory tract infection
     Route: 065
  28. DOMPERIDONE [Suspect]
     Active Substance: DOMPERIDONE
     Indication: Hiatus hernia
     Route: 048
  29. PERINDOPRIL [Suspect]
     Active Substance: PERINDOPRIL
     Indication: Product used for unknown indication
     Route: 065
  30. CIPROFLOXACIN LACTATE [Suspect]
     Active Substance: CIPROFLOXACIN LACTATE
     Indication: Sinusitis
     Route: 065
  31. CIPROFLOXACIN LACTATE [Suspect]
     Active Substance: CIPROFLOXACIN LACTATE
     Indication: Lower respiratory tract infection
     Route: 065
  32. CIPROFLOXACIN HYDROCHLORIDE [Suspect]
     Active Substance: CIPROFLOXACIN HYDROCHLORIDE
     Indication: Sinusitis
     Route: 048
  33. CIPROFLOXACIN HYDROCHLORIDE [Suspect]
     Active Substance: CIPROFLOXACIN HYDROCHLORIDE
     Indication: Lower respiratory tract infection
     Route: 048
  34. CIPROFLOXACIN HYDROCHLORIDE [Suspect]
     Active Substance: CIPROFLOXACIN HYDROCHLORIDE
     Indication: Sinusitis
     Route: 048
  35. CIPROFLOXACIN HYDROCHLORIDE [Suspect]
     Active Substance: CIPROFLOXACIN HYDROCHLORIDE
     Indication: Lower respiratory tract infection
     Route: 048
  36. DOMPERIDONE MALEATE [Suspect]
     Active Substance: DOMPERIDONE MALEATE
     Indication: Hiatus hernia
     Route: 048
  37. DOMPERIDONE MALEATE [Suspect]
     Active Substance: DOMPERIDONE MALEATE
     Indication: Hiatus hernia
     Route: 065
  38. ATIVAN [Concomitant]
     Active Substance: LORAZEPAM
  39. DICYCLOMINE HYDROCHLORIDE [Concomitant]
     Active Substance: DICYCLOMINE HYDROCHLORIDE
  40. ATENOLOL [Concomitant]
     Active Substance: ATENOLOL
     Route: 065
  41. EZETIMIBE [Concomitant]
     Active Substance: EZETIMIBE
     Route: 065
  42. HYDROCHLOROTHIAZIDE [Concomitant]
     Active Substance: HYDROCHLOROTHIAZIDE
     Route: 065
  43. HYDROCHLOROTHIAZIDE [Concomitant]
     Active Substance: HYDROCHLOROTHIAZIDE
     Route: 065
  44. IRBESARTAN [Concomitant]
     Active Substance: IRBESARTAN
     Route: 065
  45. IRBESARTAN [Concomitant]
     Active Substance: IRBESARTAN
     Route: 065
  46. FENOFIBRATE [Concomitant]
     Active Substance: FENOFIBRATE
     Route: 065
  47. PAROXETINE HYDROCHLORIDE [Concomitant]
     Active Substance: PAROXETINE HYDROCHLORIDE
  48. PREDNISONE [Concomitant]
     Active Substance: PREDNISONE
     Route: 048
  49. PREDNISONE [Concomitant]
     Active Substance: PREDNISONE
     Route: 065
  50. SIMVASTATIN [Concomitant]
     Active Substance: SIMVASTATIN
     Route: 065
  51. PANTOPRAZOLE MAGNESIUM [Concomitant]
     Active Substance: PANTOPRAZOLE MAGNESIUM
     Route: 065
  52. CIPROFLOXACIN LACTATE [Concomitant]
     Active Substance: CIPROFLOXACIN LACTATE
     Route: 065
  53. PANTOPRAZOLE SODIUM [Concomitant]
     Active Substance: PANTOPRAZOLE SODIUM
     Route: 065

REACTIONS (60)
  - Abdominal pain lower [Not Recovered/Not Resolved]
  - Anxiety [Not Recovered/Not Resolved]
  - Aphthous ulcer [Not Recovered/Not Resolved]
  - Arthralgia [Not Recovered/Not Resolved]
  - Blood cholesterol increased [Not Recovered/Not Resolved]
  - Blood pressure diastolic abnormal [Not Recovered/Not Resolved]
  - Blood pressure diastolic decreased [Not Recovered/Not Resolved]
  - Blood pressure fluctuation [Not Recovered/Not Resolved]
  - Blood pressure increased [Not Recovered/Not Resolved]
  - Blood pressure systolic abnormal [Not Recovered/Not Resolved]
  - Blood pressure systolic increased [Not Recovered/Not Resolved]
  - Chest pain [Not Recovered/Not Resolved]
  - Chronic sinusitis [Not Recovered/Not Resolved]
  - Contusion [Not Recovered/Not Resolved]
  - Cough [Not Recovered/Not Resolved]
  - Dizziness [Not Recovered/Not Resolved]
  - Drug interaction [Not Recovered/Not Resolved]
  - Fall [Not Recovered/Not Resolved]
  - Fungal infection [Not Recovered/Not Resolved]
  - Headache [Not Recovered/Not Resolved]
  - Heart rate decreased [Not Recovered/Not Resolved]
  - Hip fracture [Not Recovered/Not Resolved]
  - Increased appetite [Not Recovered/Not Resolved]
  - Infusion related reaction [Not Recovered/Not Resolved]
  - Injection site extravasation [Not Recovered/Not Resolved]
  - Injection site pain [Not Recovered/Not Resolved]
  - Joint dislocation [Not Recovered/Not Resolved]
  - Joint stiffness [Not Recovered/Not Resolved]
  - Joint swelling [Not Recovered/Not Resolved]
  - Loss of personal independence in daily activities [Not Recovered/Not Resolved]
  - Lower respiratory tract infection [Not Recovered/Not Resolved]
  - Musculoskeletal pain [Not Recovered/Not Resolved]
  - Musculoskeletal stiffness [Not Recovered/Not Resolved]
  - Nasal congestion [Not Recovered/Not Resolved]
  - Nasal discomfort [Not Recovered/Not Resolved]
  - Nasal dryness [Not Recovered/Not Resolved]
  - Oral herpes [Not Recovered/Not Resolved]
  - Oropharyngeal pain [Not Recovered/Not Resolved]
  - Oxygen saturation decreased [Not Recovered/Not Resolved]
  - Pain [Not Recovered/Not Resolved]
  - Pain in extremity [Not Recovered/Not Resolved]
  - Pain in jaw [Not Recovered/Not Resolved]
  - Palpitations [Not Recovered/Not Resolved]
  - Paranasal sinus discomfort [Not Recovered/Not Resolved]
  - Red blood cell sedimentation rate increased [Not Recovered/Not Resolved]
  - Rhinalgia [Not Recovered/Not Resolved]
  - Sinus congestion [Not Recovered/Not Resolved]
  - Sinusitis [Not Recovered/Not Resolved]
  - Skin laceration [Not Recovered/Not Resolved]
  - Stress [Not Recovered/Not Resolved]
  - Swelling [Not Recovered/Not Resolved]
  - Swelling face [Not Recovered/Not Resolved]
  - Throat irritation [Not Recovered/Not Resolved]
  - Upper-airway cough syndrome [Not Recovered/Not Resolved]
  - Urinary tract infection [Not Recovered/Not Resolved]
  - Vulvovaginal burning sensation [Not Recovered/Not Resolved]
  - Vulvovaginal pruritus [Not Recovered/Not Resolved]
  - Weight increased [Not Recovered/Not Resolved]
  - White blood cell count decreased [Not Recovered/Not Resolved]
  - Drug ineffective [Not Recovered/Not Resolved]
